FAERS Safety Report 17208738 (Version 2)
Quarter: 2020Q1

REPORT INFORMATION
  Report Type: Spontaneous
  Country: US (occurrence: US)
  Receive Date: 20191227
  Receipt Date: 20200123
  Transmission Date: 20200409
  Serious: Yes (Hospitalization, Other)
  Sender: FDA-Public Use
  Company Number: US-PFIZER INC-2019555517

PATIENT
  Age: 55 Year
  Sex: Female
  Weight: 79.37 kg

DRUGS (1)
  1. IBRANCE [Suspect]
     Active Substance: PALBOCICLIB
     Indication: BREAST CANCER FEMALE
     Dosage: 125 MG, CYCLIC(1 CAP, DAILY ON DAYS 1-21 OF A 28 DAY CYCLE)
     Route: 048
     Dates: start: 20190913, end: 20200110

REACTIONS (5)
  - Abdominal distension [Unknown]
  - Peripheral swelling [Unknown]
  - Constipation [Unknown]
  - Urine abnormality [Unknown]
  - Eating disorder [Unknown]

NARRATIVE: CASE EVENT DATE: 20200120
